FAERS Safety Report 5400862-5 (Version None)
Quarter: 2007Q3

REPORT INFORMATION
  Report Type: 
  Country: None (occurrence: None)
  Receive Date: 20070730
  Receipt Date: 20070430
  Transmission Date: 20080115
  Serious: No
  Sender: FDA-Public Use
  Company Number: A0649273A

PATIENT
  Sex: Female

DRUGS (2)
  1. IMITREX [Suspect]
     Indication: MIGRAINE
     Dosage: 50MG UNKNOWN
     Route: 048
     Dates: start: 20030701
  2. CYMBALTA [Suspect]
     Dosage: 30MG PER DAY
     Route: 048
     Dates: start: 20070401

REACTIONS (1)
  - ASTHENIA [None]
